FAERS Safety Report 7406297-8 (Version None)
Quarter: 2011Q2

REPORT INFORMATION
  Report Type: 
  Country: None (occurrence: None)
  Receive Date: 20110411
  Receipt Date: 20110329
  Transmission Date: 20111010
  Serious: Yes (Life-Threatening, Hospitalization, Disabling, Other)
  Sender: FDA-Public Use
  Company Number: US-MERCK-1102USA00356

PATIENT
  Age: 48 Year
  Sex: Male
  Weight: 91 kg

DRUGS (10)
  1. PEPCID [Suspect]
     Indication: PRODUCT USED FOR UNKNOWN INDICATION
     Route: 048
     Dates: start: 20110108, end: 20110120
  2. PLAVIX [Concomitant]
     Route: 065
     Dates: start: 20110117
  3. HEPARIN [Suspect]
     Route: 065
     Dates: start: 20110101, end: 20110101
  4. AMITRIPTYLINE HYDROCHLORIDE [Concomitant]
     Route: 065
  5. HEPARIN [Suspect]
     Indication: PERIPHERAL EMBOLISM
     Route: 065
     Dates: start: 20110101, end: 20110101
  6. OXYCONTIN [Concomitant]
     Route: 065
  7. PLAVIX [Concomitant]
     Indication: PAIN IN EXTREMITY
     Route: 065
     Dates: start: 20110105, end: 20110108
  8. MORPHINE [Concomitant]
     Route: 065
     Dates: start: 20110101
  9. NICOTINE [Concomitant]
     Route: 065
  10. GABAPENTIN [Concomitant]
     Route: 065

REACTIONS (2)
  - HEPARIN-INDUCED THROMBOCYTOPENIA [None]
  - LIMB INJURY [None]
